FAERS Safety Report 18944123 (Version 7)
Quarter: 2021Q4

REPORT INFORMATION
  Report Type: Report from Study
  Country: ES (occurrence: ES)
  Receive Date: 20210226
  Receipt Date: 20211012
  Transmission Date: 20220303
  Serious: Yes (Death, Other)
  Sender: FDA-Public Use
  Company Number: ES-ROCHE-2775047

PATIENT
  Age: 31 Year
  Sex: Female
  Weight: 57 kg

DRUGS (54)
  1. TIRAGOLUMAB [Suspect]
     Active Substance: TIRAGOLUMAB
     Indication: Cervix carcinoma
     Dosage: DOSE LAST STUDY DRUG ADMIN PRIOR AE IS 600 MG.?START DATE OF MOST RECENT DOSE OF STUDY DRUG PRIOR TO
     Route: 042
     Dates: start: 20210204
  2. ATEZOLIZUMAB [Suspect]
     Active Substance: ATEZOLIZUMAB
     Indication: Cervix carcinoma
     Dosage: DOSE LAST STUDY DRUG ADMIN PRIOR AE IS 1200 MG?START DATE OF MOST RECENT DOSE OF STUDY DRUG PRIOR TO
     Route: 042
     Dates: start: 20210204
  3. REMIFENTANIL [Concomitant]
     Active Substance: REMIFENTANIL
     Indication: Hepatitis
     Route: 042
     Dates: start: 20210219, end: 20210223
  4. DEXKETOPROFEN [Concomitant]
     Active Substance: DEXKETOPROFEN
     Indication: Pain
  5. METHYLPREDNISOLONE [Concomitant]
     Active Substance: METHYLPREDNISOLONE
     Indication: Hepatitis
     Route: 042
     Dates: start: 20210215, end: 20210215
  6. METHYLPREDNISOLONE [Concomitant]
     Active Substance: METHYLPREDNISOLONE
     Route: 042
     Dates: start: 20210219, end: 20210223
  7. METHYLPREDNISOLONE [Concomitant]
     Active Substance: METHYLPREDNISOLONE
     Route: 042
     Dates: start: 20210219, end: 20210219
  8. METHYLPREDNISOLONE [Concomitant]
     Active Substance: METHYLPREDNISOLONE
     Route: 042
     Dates: start: 20210217, end: 20210219
  9. METHYLPREDNISOLONE [Concomitant]
     Active Substance: METHYLPREDNISOLONE
     Route: 042
     Dates: start: 20210224, end: 20210226
  10. PREDNISONE [Concomitant]
     Active Substance: PREDNISONE
     Indication: Hepatitis
     Route: 048
     Dates: start: 20210215
  11. PREDNISONE [Concomitant]
     Active Substance: PREDNISONE
     Route: 048
     Dates: start: 20210226, end: 20210301
  12. PREDNISONE [Concomitant]
     Active Substance: PREDNISONE
     Route: 048
     Dates: start: 20210226, end: 20210304
  13. PREDNISONE [Concomitant]
     Active Substance: PREDNISONE
     Route: 048
     Dates: start: 20210304
  14. PANTOPRAZOLE [Concomitant]
     Active Substance: PANTOPRAZOLE
     Indication: Hepatitis
     Route: 042
     Dates: start: 20210219, end: 20210226
  15. SULFAMETHOXAZOLE\TRIMETHOPRIM [Concomitant]
     Active Substance: SULFAMETHOXAZOLE\TRIMETHOPRIM
     Indication: Hepatitis
     Route: 042
     Dates: start: 20210217, end: 20210304
  16. ACETAMINOPHEN [Concomitant]
     Active Substance: ACETAMINOPHEN
     Indication: Hepatitis
     Route: 042
     Dates: start: 20210217, end: 20210226
  17. ACETAMINOPHEN [Concomitant]
     Active Substance: ACETAMINOPHEN
     Indication: Pyrexia
     Dates: start: 20210217, end: 20210217
  18. ACETAMINOPHEN [Concomitant]
     Active Substance: ACETAMINOPHEN
     Route: 048
     Dates: start: 20210204
  19. ACETAMINOPHEN [Concomitant]
     Active Substance: ACETAMINOPHEN
     Route: 048
     Dates: start: 20210226, end: 20210304
  20. OMEPRAZOLE [Concomitant]
     Active Substance: OMEPRAZOLE
     Indication: Hepatitis
     Route: 048
     Dates: start: 20210217, end: 20210219
  21. OMEPRAZOLE [Concomitant]
     Active Substance: OMEPRAZOLE
     Route: 048
     Dates: start: 20210226, end: 20210304
  22. METOCLOPRAMIDE HYDROCHLORIDE [Concomitant]
     Active Substance: METOCLOPRAMIDE HYDROCHLORIDE
     Indication: Hepatitis
     Route: 042
     Dates: start: 20210217, end: 20210302
  23. METAMIZOLE [Concomitant]
     Active Substance: METAMIZOLE
     Indication: Hepatitis
     Route: 042
     Dates: start: 20210217, end: 20210217
  24. AMLODIPINE BESYLATE [Concomitant]
     Active Substance: AMLODIPINE BESYLATE
     Indication: Hepatitis
     Route: 048
     Dates: start: 20210217, end: 20210219
  25. AMLODIPINE BESYLATE [Concomitant]
     Active Substance: AMLODIPINE BESYLATE
     Route: 048
     Dates: start: 20210304
  26. AMLODIPINE BESYLATE [Concomitant]
     Active Substance: AMLODIPINE BESYLATE
     Route: 048
     Dates: start: 20210225, end: 20210304
  27. POLYETHYLENE GLYCOLS [Concomitant]
     Active Substance: POLYETHYLENE GLYCOLS
     Indication: Hepatitis
     Route: 048
     Dates: start: 20210218, end: 20210304
  28. VANCOMYCIN [Concomitant]
     Active Substance: VANCOMYCIN
     Indication: Hepatitis
     Route: 042
     Dates: start: 20210219, end: 20210219
  29. VANCOMYCIN [Concomitant]
     Active Substance: VANCOMYCIN
     Route: 042
     Dates: start: 20210302, end: 20210304
  30. VANCOMYCIN [Concomitant]
     Active Substance: VANCOMYCIN
     Route: 048
     Dates: start: 20210304
  31. PROPOFOL [Concomitant]
     Active Substance: PROPOFOL
     Indication: Hepatitis
     Route: 042
     Dates: start: 20210219, end: 20210223
  32. ONDANSETRON [Concomitant]
     Active Substance: ONDANSETRON
     Indication: Hepatitis
     Route: 042
     Dates: start: 20210219, end: 20210219
  33. LEVETIRACETAM [Concomitant]
     Active Substance: LEVETIRACETAM
     Indication: Hepatitis
     Route: 042
     Dates: start: 20210219, end: 20210304
  34. LEVETIRACETAM [Concomitant]
     Active Substance: LEVETIRACETAM
     Route: 048
     Dates: start: 20210304
  35. CEFTRIAXONE [Concomitant]
     Active Substance: CEFTRIAXONE
     Indication: Hepatitis
     Route: 042
     Dates: start: 20210219, end: 20210221
  36. AMPICILLIN [Concomitant]
     Active Substance: AMPICILLIN
     Indication: Hepatitis
     Route: 042
     Dates: start: 20210219, end: 20210219
  37. AMPICILLIN [Concomitant]
     Active Substance: AMPICILLIN
     Route: 042
     Dates: start: 20210219, end: 20210304
  38. ACYCLOVIR [Concomitant]
     Active Substance: ACYCLOVIR
     Indication: Hepatitis
     Route: 042
     Dates: start: 20210219, end: 20210219
  39. HUMAN IMMUNOGLOBULIN G [Concomitant]
     Active Substance: HUMAN IMMUNOGLOBULIN G
     Route: 042
     Dates: start: 20210219, end: 20210224
  40. DEXCHLORPHENIRAMINE [Concomitant]
     Active Substance: DEXCHLORPHENIRAMINE
     Indication: Hepatitis
     Route: 042
     Dates: start: 20210220, end: 20210223
  41. METHYLPREDNISOLONE [Concomitant]
     Active Substance: METHYLPREDNISOLONE
     Indication: Hepatitis
     Route: 042
     Dates: start: 20210224, end: 20210226
  42. HALOPERIDOL [Concomitant]
     Active Substance: HALOPERIDOL
     Indication: Hepatitis
     Route: 058
     Dates: start: 20210225, end: 20210302
  43. HALOPERIDOL [Concomitant]
     Active Substance: HALOPERIDOL
     Route: 058
     Dates: start: 20210225, end: 20210225
  44. FUROSEMIDE [Concomitant]
     Active Substance: FUROSEMIDE
     Indication: Hepatitis
     Route: 042
     Dates: start: 20210225, end: 20210226
  45. FUROSEMIDE [Concomitant]
     Active Substance: FUROSEMIDE
     Route: 042
     Dates: start: 20210302, end: 20210304
  46. FUROSEMIDE [Concomitant]
     Active Substance: FUROSEMIDE
     Route: 048
     Dates: start: 20210304
  47. CALCIUM [Concomitant]
     Active Substance: CALCIUM
     Indication: Hepatitis
     Route: 048
     Dates: start: 20210301, end: 20210304
  48. CALCIUM [Concomitant]
     Active Substance: CALCIUM
     Route: 048
     Dates: start: 20210304
  49. IBUPROFEN [Concomitant]
     Active Substance: IBUPROFEN
     Indication: Hepatitis
     Route: 048
     Dates: start: 20210226, end: 20210302
  50. CHOLECALCIFEROL [Concomitant]
     Active Substance: CHOLECALCIFEROL
     Indication: Hepatitis
     Route: 048
     Dates: start: 20210301, end: 20210304
  51. ENOXAPARIN SODIUM [Concomitant]
     Active Substance: ENOXAPARIN SODIUM
     Indication: Hepatitis
     Route: 058
     Dates: start: 20210217, end: 20210304
  52. SULFAMETHOXAZOLE [Concomitant]
     Active Substance: SULFAMETHOXAZOLE
     Indication: Hepatitis
     Route: 048
     Dates: start: 20210204
  53. TRIMETHOPRIM [Concomitant]
     Active Substance: TRIMETHOPRIM
     Indication: Hepatitis
     Route: 048
     Dates: start: 20210304
  54. VITAMIN D3 [Concomitant]
     Active Substance: CHOLECALCIFEROL
     Indication: Hepatitis
     Route: 048
     Dates: start: 20210304

REACTIONS (1)
  - Raynaud^s phenomenon [Recovered/Resolved with Sequelae]

NARRATIVE: CASE EVENT DATE: 20210211
